FAERS Safety Report 4287071-0 (Version None)
Quarter: 2004Q1

REPORT INFORMATION
  Report Type: 
  Country: None (occurrence: None)
  Receive Date: 20040120
  Receipt Date: 20031030
  Transmission Date: 20041129
  Serious: Yes (Hospitalization)
  Sender: FDA-Public Use
  Company Number: 2003UW14377

PATIENT
  Age: 53 Year
  Sex: Male

DRUGS (6)
  1. PRILOSEC [Suspect]
     Indication: DYSPEPSIA
     Dosage: 1 TABLET DAILY
     Dates: start: 20031027, end: 20031029
  2. ZOCOR [Concomitant]
  3. LOPRESSOR [Concomitant]
  4. POTASSIUM [Concomitant]
  5. ASPIRIN [Concomitant]
  6. LASIX [Concomitant]

REACTIONS (2)
  - DIZZINESS [None]
  - HYPERHIDROSIS [None]
